FAERS Safety Report 8212738-9 (Version None)
Quarter: 2012Q1

REPORT INFORMATION
  Report Type: 
  Country: None (occurrence: None)
  Receive Date: 20120315
  Receipt Date: 20120305
  Transmission Date: 20120608
  Serious: Yes (Other)
  Sender: FDA-Public Use
  Company Number: JP-MERCK-1203USA00968

PATIENT
  Age: 69 Year
  Sex: Male

DRUGS (9)
  1. FOSAMAX [Suspect]
     Indication: OSTEOPOROSIS
     Route: 048
     Dates: start: 20110907, end: 20120210
  2. RABEPRAZOLE SODIUM [Concomitant]
     Indication: VARICES OESOPHAGEAL
     Route: 048
     Dates: start: 20100101
  3. MAGLAX (MAGNESIUM SULFATE) [Concomitant]
     Indication: CONSTIPATION
     Route: 048
     Dates: start: 20100101
  4. SIGMART [Concomitant]
     Indication: ANGINA PECTORIS
     Route: 048
     Dates: start: 20100101
  5. DIART [Concomitant]
     Indication: ASCITES
     Route: 048
     Dates: start: 20110708
  6. AMINOLEBAN EN [Concomitant]
     Indication: HEPATIC FAILURE
     Route: 065
     Dates: start: 20100101
  7. KANAMYCIN [Concomitant]
     Indication: HYPERAMMONAEMIA
     Route: 048
     Dates: start: 20111207
  8. DEPAS [Concomitant]
     Indication: INSOMNIA
     Route: 048
     Dates: start: 20111128
  9. LACTULOSE [Concomitant]
     Indication: HYPERAMMONAEMIA
     Route: 048
     Dates: start: 20100101

REACTIONS (1)
  - STOMATITIS [None]
